FAERS Safety Report 6062692-3 (Version None)
Quarter: 2009Q1

REPORT INFORMATION
  Report Type: 
  Country: None (occurrence: None)
  Receive Date: 20090203
  Receipt Date: 20090128
  Transmission Date: 20090719
  Serious: Yes (Hospitalization)
  Sender: FDA-Public Use
  Company Number: US-ASTRAZENECA-2009UW02521

PATIENT
  Age: 61 Year
  Sex: Female
  Weight: 113.6 kg

DRUGS (7)
  1. ENTOCORT EC [Suspect]
     Indication: CROHN'S DISEASE
     Route: 048
     Dates: start: 20081211
  2. CIMZIA [Concomitant]
     Indication: CROHN'S DISEASE
     Dates: start: 20080716, end: 20080716
  3. CIMZIA [Concomitant]
     Dates: start: 20080730, end: 20080730
  4. CIMZIA [Concomitant]
     Dates: start: 20080813, end: 20080813
  5. CIMZIA [Concomitant]
     Dates: start: 20080910, end: 20080910
  6. CIMZIA [Concomitant]
     Dates: start: 20081008, end: 20081008
  7. CIMZIA [Concomitant]
     Dates: start: 20081212, end: 20081212

REACTIONS (2)
  - ILL-DEFINED DISORDER [None]
  - RASH [None]
